FAERS Safety Report 16037040 (Version 1)
Quarter: 2019Q1

REPORT INFORMATION
  Report Type: Spontaneous
  Country: GB (occurrence: GB)
  Receive Date: 20190305
  Receipt Date: 20190305
  Transmission Date: 20190418
  Serious: Yes (Hospitalization)
  Sender: FDA-Public Use
  Company Number: GB-PFIZER INC-2019088771

PATIENT
  Age: 41 Year
  Sex: Female
  Weight: 71.4 kg

DRUGS (1)
  1. DOXYCYCLINE MONOHYDRATE [Suspect]
     Active Substance: DOXYCYCLINE
     Indication: ACTINOMYCOSIS
     Dosage: 400 MG, 1X/DAY
     Route: 048
     Dates: start: 20180822, end: 20180905

REACTIONS (3)
  - Conversion disorder [Recovered/Resolved]
  - Hypoaesthesia [Recovered/Resolved]
  - Asthenia [Recovered/Resolved]

NARRATIVE: CASE EVENT DATE: 20180829
